FAERS Safety Report 8524855-4 (Version None)
Quarter: 2012Q3

REPORT INFORMATION
  Report Type: 
  Country: None (occurrence: None)
  Receive Date: 20120720
  Receipt Date: 20120718
  Transmission Date: 20120928
  Serious: Yes (Death, Other)
  Sender: FDA-Public Use
  Company Number: PHHY2012US061724

PATIENT
  Age: 65 Year
  Sex: Male

DRUGS (4)
  1. ASCORBIC ACID [Suspect]
     Indication: SMALL CELL LUNG CANCER STAGE UNSPECIFIED
  2. LEVETIRACETAM [Interacting]
     Indication: CONVULSION
  3. VALPROIC ACID [Interacting]
     Indication: CONVULSION
  4. MISTLETOE [Interacting]
     Indication: SMALL CELL LUNG CANCER STAGE UNSPECIFIED

REACTIONS (10)
  - CONFUSIONAL STATE [None]
  - NEOPLASM MALIGNANT [None]
  - HEMIPARESIS [None]
  - CEREBRAL HAEMORRHAGE [None]
  - FATIGUE [None]
  - AGITATION [None]
  - DRUG INTERACTION [None]
  - NEUROLOGICAL DECOMPENSATION [None]
  - BRAIN OEDEMA [None]
  - CONVULSION [None]
